FAERS Safety Report 18734431 (Version 1)
Quarter: 2021Q1

REPORT INFORMATION
  Report Type: Spontaneous
  Country: US (occurrence: US)
  Receive Date: 20210112
  Receipt Date: 20210112
  Transmission Date: 20210419
  Serious: Yes (Other)
  Sender: FDA-Public Use
  Company Number: None

PATIENT
  Age: 61 Year
  Sex: Female

DRUGS (6)
  1. BISOPRL/HCTZ [Concomitant]
  2. HYDROCO [Concomitant]
  3. DICLOFENAC GEL [Concomitant]
     Active Substance: DICLOFENAC
  4. EZFE 200 [Concomitant]
  5. LORAZEPAM. [Concomitant]
     Active Substance: LORAZEPAM
  6. REPATHA [Suspect]
     Active Substance: EVOLOCUMAB
     Indication: ARTERIOSCLEROSIS
     Route: 058
     Dates: start: 20180130

REACTIONS (3)
  - Breast cancer [None]
  - Bone cancer [None]
  - Ulcer haemorrhage [None]

NARRATIVE: CASE EVENT DATE: 202010
